FAERS Safety Report 23610512 (Version 1)
Quarter: 2024Q1

REPORT INFORMATION
  Report Type: Spontaneous
  Country: CA (occurrence: CA)
  Receive Date: 20240308
  Receipt Date: 20240308
  Transmission Date: 20240410
  Serious: Yes (Other)
  Sender: FDA-Public Use
  Company Number: CA-TEVA-VS-3165912

PATIENT
  Age: 62 Year
  Sex: Female

DRUGS (14)
  1. AZATHIOPRINE [Suspect]
     Active Substance: AZATHIOPRINE
     Route: 065
  2. CYCLOSPORINE [Suspect]
     Active Substance: CYCLOSPORINE
     Route: 065
  3. PREDNISONE [Suspect]
     Active Substance: PREDNISONE
     Dosage: DOSE FORM: NOT SPECIFIED
     Route: 048
  4. ACTEMRA [Suspect]
     Active Substance: TOCILIZUMAB
     Dosage: DOSE FORM: NOT SPECIFIED
     Route: 065
  5. CIMZIA [Suspect]
     Active Substance: CERTOLIZUMAB PEGOL
     Route: 065
  6. CORTISONE ACETATE [Suspect]
     Active Substance: CORTISONE ACETATE
     Route: 065
  7. COSENTYX [Suspect]
     Active Substance: SECUKINUMAB
     Route: 065
  8. ENBREL [Suspect]
     Active Substance: ETANERCEPT
     Route: 065
  9. HUMIRA [Suspect]
     Active Substance: ADALIMUMAB
     Dosage: DOSE FORM: SOLUTION SUBCUTANEOUS
     Route: 065
  10. KEVZARA [Suspect]
     Active Substance: SARILUMAB
     Route: 065
  11. METHOTREXATE [Suspect]
     Active Substance: METHOTREXATE
     Dosage: DOSE FORM: NOT SPECIFIED
     Route: 048
  12. ORENCIA [Suspect]
     Active Substance: ABATACEPT
     Route: 065
  13. PLAQUENIL [Suspect]
     Active Substance: HYDROXYCHLOROQUINE SULFATE
     Route: 065
  14. XELJANZ [Suspect]
     Active Substance: TOFACITINIB CITRATE
     Dosage: DOSE FORM: NOT SPECIFIED
     Route: 065

REACTIONS (2)
  - Anaphylactic reaction [Unknown]
  - Drug ineffective [Unknown]
